FAERS Safety Report 8216906-1 (Version None)
Quarter: 2012Q1

REPORT INFORMATION
  Report Type: 
  Country: None (occurrence: None)
  Receive Date: 20120318
  Receipt Date: 20120309
  Transmission Date: 20120608
  Serious: Yes (Hospitalization, Other)
  Sender: FDA-Public Use
  Company Number: US-VERTEX PHARMACEUTICALS INC.-AE-2012-003429

PATIENT
  Sex: Female

DRUGS (5)
  1. RIBAVIRIN [Concomitant]
     Route: 048
     Dates: end: 20120103
  2. PEGASYS [Concomitant]
     Indication: HEPATITIS C
     Route: 058
     Dates: start: 20111025, end: 20120103
  3. RIBAVIRIN [Concomitant]
     Indication: HEPATITIS C
     Route: 048
     Dates: start: 20111025
  4. RIBAVIRIN [Concomitant]
     Route: 048
     Dates: start: 20111201
  5. INCIVEK [Suspect]
     Indication: HEPATITIS C
     Route: 048
     Dates: start: 20111025, end: 20111227

REACTIONS (3)
  - ANAEMIA [None]
  - CELLULITIS [None]
  - RASH [None]
